FAERS Safety Report 17702681 (Version 1)
Quarter: 2020Q2

REPORT INFORMATION
  Report Type: Report from Study
  Country: IT (occurrence: IT)
  Receive Date: 20200423
  Receipt Date: 20200423
  Transmission Date: 20200714
  Serious: Yes (Other)
  Sender: FDA-Public Use
  Company Number: IT-PFIZER INC-2020164797

PATIENT
  Age: 87 Year
  Sex: Male

DRUGS (7)
  1. HALCION [Suspect]
     Active Substance: TRIAZOLAM
     Indication: INSOMNIA
     Dosage: UNK
     Dates: end: 20200126
  2. CARDIRENE [Concomitant]
     Active Substance: ASPIRIN DL-LYSINE
  3. PANTORC [Concomitant]
     Active Substance: PANTOPRAZOLE SODIUM
  4. TORVAST [Concomitant]
     Active Substance: ATORVASTATIN
  5. ALTIAZEM [Concomitant]
     Active Substance: DILTIAZEM HYDROCHLORIDE
  6. HALCION [Suspect]
     Active Substance: TRIAZOLAM
     Dosage: 0.25 DF, 1X/DAY
     Route: 048
     Dates: start: 20200127, end: 20200203
  7. VASORETIC [Concomitant]
     Active Substance: ENALAPRIL MALEATE\HYDROCHLOROTHIAZIDE

REACTIONS (3)
  - Withdrawal syndrome [Recovering/Resolving]
  - Intentional product misuse [Unknown]
  - Dyspnoea [Recovering/Resolving]

NARRATIVE: CASE EVENT DATE: 20200203
